FAERS Safety Report 9563501 (Version 1)
Quarter: 2013Q1

REPORT INFORMATION
  Report Type: Spontaneous
  Country: US (occurrence: None)
  Receive Date: 20121227
  Receipt Date: 20121227
  Transmission Date: 20140127
  Serious: Yes (Other)
  Sender: FDA-Public Use
  Company Number: PHEH2012US015234

PATIENT
  Age: 16 Year
  Sex: Female
  Weight: 49.7 kg

DRUGS (5)
  1. EXJADE [Suspect]
     Indication: HAEMOSIDEROSIS
     Route: 048
     Dates: start: 20120717, end: 20120729
  2. TRANSFUSIONS ( NO INGREDIENTS/SUBSTANCES) [Concomitant]
  3. NAPROSYN ( NAPROXEN) [Concomitant]
  4. TYLENOL ( PARACETAMOL) [Concomitant]
  5. BENADRYL ( AMMONIUM CHLORIDE, DIPHENHYDRAMINE HYDROCHLORIDE, MENTHOL, SODIUM CITRATE) [Concomitant]

REACTIONS (5)
  - Angioedema [None]
  - Lip oedema [None]
  - Swelling face [None]
  - Lip swelling [None]
  - Rash generalised [None]
